FAERS Safety Report 6892653-3 (Version None)
Quarter: 2010Q3

REPORT INFORMATION
  Report Type: 
  Country: None (occurrence: None)
  Receive Date: 20100731
  Receipt Date: 20080808
  Transmission Date: 20110219
  Serious: Yes (Death, Other)
  Sender: FDA-Public Use
  Company Number: US-PFIZER INC-2007065971

PATIENT
  Sex: Male

DRUGS (7)
  1. NEURONTIN [Suspect]
     Indication: MANIA
     Route: 048
  2. NEURONTIN [Suspect]
     Indication: BIPOLAR DISORDER
  3. NEURONTIN [Suspect]
     Indication: ATTENTION DEFICIT/HYPERACTIVITY DISORDER
  4. GABAPENTIN [Suspect]
     Indication: MANIA
     Route: 048
  5. GABAPENTIN [Suspect]
     Indication: BIPOLAR DISORDER
  6. GABAPENTIN [Suspect]
     Indication: ATTENTION DEFICIT/HYPERACTIVITY DISORDER
  7. LITHIUM [Concomitant]

REACTIONS (1)
  - COMPLETED SUICIDE [None]
